FAERS Safety Report 10982798 (Version 1)
Quarter: 2015Q2

REPORT INFORMATION
  Report Type: Spontaneous
  Country: US (occurrence: None)
  Receive Date: 20150402
  Receipt Date: 20150402
  Transmission Date: 20150821
  Serious: Yes (Hospitalization)
  Sender: FDA-Public Use
  Company Number: None

PATIENT
  Age: 83 Year
  Sex: Female
  Weight: 60.63 kg

DRUGS (1)
  1. BEVACIZUMAB (RHUMAB VEGF) [Suspect]
     Active Substance: BEVACIZUMAB
     Dosage: CYCLE + DAY  15 HELD ON 3/30/15
     Dates: end: 20150316

REACTIONS (13)
  - Laceration [None]
  - Urinary incontinence [None]
  - Pleural effusion [None]
  - Cardiomegaly [None]
  - Fall [None]
  - Seizure [None]
  - Faecal incontinence [None]
  - Headache [None]
  - Syncope [None]
  - Pleural fibrosis [None]
  - Atelectasis [None]
  - Coronary artery disease [None]
  - Tongue biting [None]

NARRATIVE: CASE EVENT DATE: 20150324
